FAERS Safety Report 17284118 (Version 3)
Quarter: 2020Q2

REPORT INFORMATION
  Report Type: Report from Study
  Country: US (occurrence: US)
  Receive Date: 20200117
  Receipt Date: 20200415
  Transmission Date: 20200713
  Serious: Yes (Hospitalization)
  Sender: FDA-Public Use
  Company Number: US-PFIZER INC-2020003632

PATIENT
  Age: 59 Year
  Sex: Male
  Weight: 102.8 kg

DRUGS (10)
  1. AVELUMAB [Suspect]
     Active Substance: AVELUMAB
     Indication: RENAL CELL CARCINOMA
     Dosage: 10 MG/KG, EVERY 2 WEEKS
     Route: 042
     Dates: start: 20170418, end: 20170502
  2. IMODIUM [Concomitant]
     Active Substance: LOPERAMIDE HYDROCHLORIDE
     Indication: DIARRHOEA
     Dosage: 2 MG, AS NEEDED (PRN)
     Route: 048
     Dates: start: 20170723
  3. LORATADINE. [Concomitant]
     Active Substance: LORATADINE
     Indication: EAR DISCOMFORT
     Dosage: 10 MG, 1X/DAY
     Route: 048
     Dates: start: 20170901
  4. ERYTHROMYCIN. [Concomitant]
     Active Substance: ERYTHROMYCIN
     Indication: HORDEOLUM
     Dosage: 1 APPLICATION, AS NEEDED (PRN)
     Route: 061
     Dates: start: 20190617
  5. FENOFIBRATE. [Concomitant]
     Active Substance: FENOFIBRATE
     Indication: HYPERTRIGLYCERIDAEMIA
     Dosage: 160 MG, 1X/DAY
     Route: 048
     Dates: start: 20171030
  6. DOCUSATE SODIUM. [Concomitant]
     Active Substance: DOCUSATE SODIUM
     Indication: CONSTIPATION PROPHYLAXIS
     Dosage: 100 MG, AS NEEDED (PRN)
     Route: 048
     Dates: start: 2015
  7. PSYLLIUM [PLANTAGO AFRA] [Concomitant]
     Active Substance: PLANTAGO AFRA SEED
     Indication: CONSTIPATION PROPHYLAXIS
     Dosage: POWDER, 1 PACKET, AS NEEDED (PRN)
     Route: 048
     Dates: start: 2015
  8. PHENYLEPHRINE HCL [Concomitant]
     Active Substance: PHENYLEPHRINE HYDROCHLORIDE
     Indication: EAR DISCOMFORT
     Dosage: 10 MG, AS NEEDED (PRN)
     Route: 048
     Dates: start: 20170901
  9. INLYTA [Suspect]
     Active Substance: AXITINIB
     Indication: RENAL CELL CARCINOMA
     Dosage: 5 MG, TWICE DAILY CONTINUOUS
     Route: 048
     Dates: start: 20170418
  10. OMEPRAZOLE. [Concomitant]
     Active Substance: OMEPRAZOLE
     Indication: GASTROOESOPHAGEAL REFLUX DISEASE
     Dosage: 40 MG, 1X/DAY
     Route: 048
     Dates: start: 20170714

REACTIONS (1)
  - Acute coronary syndrome [Recovered/Resolved]

NARRATIVE: CASE EVENT DATE: 20191224
